FAERS Safety Report 11136869 (Version 1)
Quarter: 2015Q2

REPORT INFORMATION
  Report Type: Spontaneous
  Country: IN (occurrence: IN)
  Receive Date: 20150526
  Receipt Date: 20150526
  Transmission Date: 20150821
  Serious: Yes (Hospitalization)
  Sender: FDA-Public Use
  Company Number: IN-AUROBINDO-AUR-APL-2015-04437

PATIENT
  Age: 21 Year
  Sex: Female

DRUGS (1)
  1. METFORMIN [Suspect]
     Active Substance: METFORMIN HYDROCHLORIDE
     Indication: PRODUCT USED FOR UNKNOWN INDICATION
     Dosage: 500 MG, DAILY
     Route: 065

REACTIONS (10)
  - Hypoglycaemic coma [Unknown]
  - Major depression [Recovered/Resolved]
  - Parotid gland enlargement [Unknown]
  - Self-medication [Unknown]
  - Overdose [Unknown]
  - Cholelithiasis [Unknown]
  - Blood follicle stimulating hormone decreased [Unknown]
  - Drug abuse [Unknown]
  - Anorexia nervosa [Recovered/Resolved]
  - Blood luteinising hormone decreased [Unknown]
